FAERS Safety Report 14267840 (Version 1)
Quarter: 2017Q4

REPORT INFORMATION
  Report Type: Spontaneous
  Country: IT (occurrence: IT)
  Receive Date: 20171211
  Receipt Date: 20171211
  Transmission Date: 20180321
  Serious: Yes (Hospitalization, Other)
  Sender: FDA-Public Use
  Company Number: IT-GLENMARK PHARMACEUTICALS-2017GMK029988

PATIENT
  Age: 82 Year
  Sex: Female

DRUGS (10)
  1. VANCOMYCIN [Concomitant]
     Active Substance: VANCOMYCIN
     Dosage: LOADING DOSE
     Route: 042
  2. LEVOFLOXACIN. [Suspect]
     Active Substance: LEVOFLOXACIN
     Indication: PRODUCT USED FOR UNKNOWN INDICATION
     Dosage: 500 MG, LOADING DOSE
     Route: 048
  3. RIFAMPICIN [Interacting]
     Active Substance: RIFAMPIN
     Indication: PRODUCT USED FOR UNKNOWN INDICATION
     Dosage: 300 MG, OD
     Route: 065
     Dates: start: 2015
  4. FENTANYL. [Suspect]
     Active Substance: FENTANYL
     Dosage: 25 ?G, 1 HOUR OVERDOSE
     Route: 062
     Dates: start: 20150528, end: 20150602
  5. FENTANYL. [Suspect]
     Active Substance: FENTANYL
     Indication: PROCEDURAL PAIN
     Dosage: 100 ?G, OVERDOSE
     Route: 065
  6. VANCOMYCIN [Concomitant]
     Active Substance: VANCOMYCIN
     Indication: STAPHYLOCOCCAL INFECTION
     Dosage: 500 MG, MAINTENANCE DOSE; AT THE END OF DIALYSIS
     Route: 042
  7. FENTANYL. [Suspect]
     Active Substance: FENTANYL
     Indication: PROCEDURAL PAIN
     Dosage: 12 ?G, 1 HOUR, OVERDOSE
     Route: 062
     Dates: start: 20150521, end: 20150528
  8. FENTANYL. [Suspect]
     Active Substance: FENTANYL
     Dosage: 200 ?G, UNK
     Route: 065
  9. VANCOMYCIN [Concomitant]
     Active Substance: VANCOMYCIN
     Indication: STAPHYLOCOCCAL INFECTION
     Dosage: UNK BY A SWAB APPLIED TO A LEFT FOOT ULCER POSITIVE FOR
     Route: 061
  10. LEVOFLOXACIN. [Interacting]
     Active Substance: LEVOFLOXACIN
     Dosage: 125 MG, OD MAINTENANCE DOSE
     Route: 048
     Dates: start: 2015

REACTIONS (8)
  - Drug interaction [Unknown]
  - Overdose [Unknown]
  - Tremor [Unknown]
  - Hallucination [Unknown]
  - Altered state of consciousness [Recovering/Resolving]
  - Miosis [Unknown]
  - Toxicity to various agents [Unknown]
  - Status epilepticus [Recovered/Resolved]

NARRATIVE: CASE EVENT DATE: 20150602
